FAERS Safety Report 7809824-1 (Version None)
Quarter: 2011Q4

REPORT INFORMATION
  Report Type: 
  Country: None (occurrence: None)
  Receive Date: 20111012
  Receipt Date: 20111011
  Transmission Date: 20120403
  Serious: Yes (Other)
  Sender: FDA-Public Use
  Company Number: BR-PFIZER INC-2011207828

PATIENT
  Age: 44 Year
  Sex: Female

DRUGS (3)
  1. GEODON [Suspect]
     Indication: BIPOLAR DISORDER
     Dosage: 160 MG (2 CAPSULES OF 80MG), 1X/DAY
     Route: 048
     Dates: start: 20060101
  2. PHENERGAN [Concomitant]
     Dosage: 1 TABLET (UNKNOWN DOSE), ONCE DAILY
     Route: 048
     Dates: start: 20110828
  3. CLONAZEPAM [Concomitant]
     Dosage: HALF TABLET (UNKNOWN DOSE), TWICE DAILY
     Route: 048
     Dates: start: 20110801

REACTIONS (4)
  - EYE DISORDER [None]
  - EPILEPSY [None]
  - VISION BLURRED [None]
  - DYSPNOEA [None]
